FAERS Safety Report 8894325 (Version 1)
Quarter: 2012Q4

REPORT INFORMATION
  Report Type: 
  Country: US (occurrence: US)
  Receive Date: 20121108
  Receipt Date: 20121108
  Transmission Date: 20130627
  Serious: No
  Sender: FDA-Public Use
  Company Number: US-BIOGENIDEC-2012BI049013

PATIENT
  Age: 47 Year
  Sex: Female

DRUGS (3)
  1. TYSABRI [Suspect]
     Indication: MULTIPLE SCLEROSIS
     Route: 042
     Dates: start: 20070205
  2. IV ANTIBIOTICS (NOS) [Concomitant]
     Indication: PROPHYLAXIS
     Route: 042
     Dates: start: 20120925, end: 20121025
  3. ORAL ANTIBIOTICS (NOS) [Concomitant]
     Indication: PROPHYLAXIS
     Dates: start: 201209

REACTIONS (2)
  - Inadequate analgesia [Not Recovered/Not Resolved]
  - Tooth extraction [Recovered/Resolved]
